FAERS Safety Report 9628640 (Version 4)
Quarter: 2013Q4

REPORT INFORMATION
  Report Type: Spontaneous
  Country: US (occurrence: US)
  Receive Date: 20131017
  Receipt Date: 20131127
  Transmission Date: 20140711
  Serious: No
  Sender: FDA-Public Use
  Company Number: US-PFIZER INC-2013295387

PATIENT
  Age: 37 Year
  Sex: Female
  Weight: 63.49 kg

DRUGS (7)
  1. LYRICA [Suspect]
     Indication: FIBROMYALGIA
     Dosage: 100 MG, 2X/DAY
     Route: 048
     Dates: start: 2005, end: 201309
  2. LYRICA [Suspect]
     Indication: NEURALGIA
  3. MOBIC [Concomitant]
     Dosage: 15 MG, 1X/DAY
  4. VISTARIL [Concomitant]
     Dosage: 25 MG, 1X/DAY
  5. BACLOFEN [Concomitant]
     Indication: MUSCLE SPASMS
     Dosage: 20 MG, 3X/DAY
     Dates: start: 2001
  6. BACLOFEN [Concomitant]
     Indication: PAIN
  7. LEXAPRO [Concomitant]
     Dosage: 20 MG, 1X/DAY

REACTIONS (3)
  - Pain [Not Recovered/Not Resolved]
  - Hypokinesia [Not Recovered/Not Resolved]
  - Fall [Unknown]
